FAERS Safety Report 6818202-3 (Version None)
Quarter: 2010Q3

REPORT INFORMATION
  Report Type: 
  Country: None (occurrence: None)
  Receive Date: 20100706
  Receipt Date: 20070629
  Transmission Date: 20110219
  Serious: No
  Sender: FDA-Public Use
  Company Number: US-PFIZER INC-2007022575

PATIENT
  Sex: Male

DRUGS (2)
  1. AZITHROMYCIN [Suspect]
     Indication: LYME DISEASE
  2. AZITHROMYCIN [Suspect]
     Indication: HIV INFECTION

REACTIONS (3)
  - DISEASE RECURRENCE [None]
  - HYPERSENSITIVITY [None]
  - PRURITUS [None]
